FAERS Safety Report 4338604-7 (Version None)
Quarter: 2004Q2

REPORT INFORMATION
  Report Type: 
  Country: None (occurrence: None)
  Receive Date: 20040414
  Receipt Date: 20031103
  Transmission Date: 20050107
  Serious: Yes (Disabling)
  Sender: FDA-Public Use
  Company Number: US-MERCK-0311USA00014

PATIENT
  Age: 80 Year
  Sex: Female

DRUGS (4)
  1. FOSAMAX [Suspect]
     Indication: BONE DISORDER
     Route: 048
     Dates: start: 20030101, end: 20030101
  2. CALCIUM (UNSPECIFIED) [Concomitant]
     Route: 065
  3. MULTIVITAMIN [Concomitant]
     Route: 065
  4. OCUVITE [Concomitant]
     Route: 065

REACTIONS (6)
  - BODY HEIGHT DECREASED [None]
  - BONE DISORDER [None]
  - FOREIGN BODY TRAUMA [None]
  - MEDICATION ERROR [None]
  - PHARMACEUTICAL PRODUCT COMPLAINT [None]
  - PHARYNGOLARYNGEAL PAIN [None]
